FAERS Safety Report 9006561 (Version 2)
Quarter: 2013Q2

REPORT INFORMATION
  Report Type: Spontaneous
  Country: US (occurrence: US)
  Receive Date: 20130110
  Receipt Date: 20130404
  Transmission Date: 20140414
  Serious: Yes (Other)
  Sender: FDA-Public Use
  Company Number: PHEH2013US000803

PATIENT
  Age: 86 Year
  Sex: Female
  Weight: 45.35 kg

DRUGS (8)
  1. GLEEVEC [Suspect]
     Dosage: 2 DF, DAILY
     Route: 048
  2. COZAAR [Concomitant]
     Dosage: 25 MG, UNK
  3. PANTOPRAZOLE [Concomitant]
     Dosage: 20 MG, UNK
  4. FUROSEMIDE [Concomitant]
     Dosage: 20 MG, UNK
  5. LIPITOR [Concomitant]
     Dosage: 10 MG, UNK
  6. DILTIAZEM [Concomitant]
  7. ASA + CAFFEINE + BUTALBITAL [Concomitant]
  8. ACTHAR [Concomitant]
     Dosage: 80 U, UNK

REACTIONS (2)
  - Transient ischaemic attack [Unknown]
  - Nausea [Recovering/Resolving]
